FAERS Safety Report 9856730 (Version 2)
Quarter: 2014Q1

REPORT INFORMATION
  Report Type: Report from Study
  Country: US (occurrence: US)
  Receive Date: 20140130
  Receipt Date: 20140130
  Transmission Date: 20141002
  Serious: Yes (Hospitalization, Other)
  Sender: FDA-Public Use
  Company Number: US-PURDUE-USA-2014-0110670

PATIENT
  Age: 35 Year
  Sex: Male

DRUGS (13)
  1. OXY CR TAB [Suspect]
     Indication: PAIN
     Dosage: 80 MG, UNKNOWN
     Route: 048
     Dates: start: 20131212, end: 20140111
  2. OXY CR TAB [Suspect]
     Dosage: UNK
     Dates: start: 2004
  3. ATRIPLA [Concomitant]
     Indication: PRODUCT USED FOR UNKNOWN INDICATION
  4. CEROVITE [Concomitant]
     Indication: PRODUCT USED FOR UNKNOWN INDICATION
  5. FAMOTIDINE [Concomitant]
     Indication: PRODUCT USED FOR UNKNOWN INDICATION
  6. FLONASE [Concomitant]
     Indication: PRODUCT USED FOR UNKNOWN INDICATION
  7. KLONOPIN [Concomitant]
     Indication: PRODUCT USED FOR UNKNOWN INDICATION
  8. LEXAPRO [Concomitant]
     Indication: PRODUCT USED FOR UNKNOWN INDICATION
  9. MELLARIL                           /00034201/ [Concomitant]
     Indication: PRODUCT USED FOR UNKNOWN INDICATION
     Dosage: 50 MG, UNK
  10. PHENERGAN                          /00033001/ [Concomitant]
     Indication: PRODUCT USED FOR UNKNOWN INDICATION
  11. QVAR [Concomitant]
     Indication: PRODUCT USED FOR UNKNOWN INDICATION
  12. SOMA [Concomitant]
     Indication: PRODUCT USED FOR UNKNOWN INDICATION
  13. ZYPREXA [Concomitant]
     Indication: PRODUCT USED FOR UNKNOWN INDICATION

REACTIONS (23)
  - Personality disorder [Unknown]
  - Colitis [Recovering/Resolving]
  - Carbon monoxide poisoning [Unknown]
  - Polydipsia [Unknown]
  - Hyponatraemia [Recovering/Resolving]
  - Drug dependence [Unknown]
  - Drug withdrawal syndrome [Unknown]
  - General physical health deterioration [Unknown]
  - Intentional drug misuse [Unknown]
  - Malaise [Unknown]
  - Paraesthesia [Unknown]
  - Escherichia infection [Unknown]
  - Candida infection [Unknown]
  - Diarrhoea [Unknown]
  - Photosensitivity reaction [Unknown]
  - Bursitis [Unknown]
  - Blood cortisol abnormal [Unknown]
  - Weight increased [Unknown]
  - Insomnia [Unknown]
  - Somnolence [Unknown]
  - Nerve compression [Unknown]
  - Therapeutic response unexpected [Unknown]
  - Clostridium test positive [Unknown]
